FAERS Safety Report 13822306 (Version 1)
Quarter: 2017Q3

REPORT INFORMATION
  Report Type: Spontaneous
  Country: US (occurrence: US)
  Receive Date: 20170801
  Receipt Date: 20170801
  Transmission Date: 20171127
  Serious: No
  Sender: FDA-Public Use
  Company Number: US-IMPAX LABORATORIES, INC-2017-IPXL-01119

PATIENT
  Age: 50 Year
  Sex: Female

DRUGS (2)
  1. ALBENZA [Suspect]
     Active Substance: ALBENDAZOLE
     Indication: STRONGYLOIDIASIS
     Dosage: 200 MG, 2 TABLETS, 2 /DAY
     Route: 048
     Dates: start: 201703, end: 201703
  2. ALBENZA [Suspect]
     Active Substance: ALBENDAZOLE
     Dosage: 200 MG, 2 TABLETS, 2 /DAY
     Route: 048
     Dates: start: 201703, end: 20170407

REACTIONS (1)
  - Drug effect incomplete [Not Recovered/Not Resolved]

NARRATIVE: CASE EVENT DATE: 201703
